FAERS Safety Report 4655018-0 (Version None)
Quarter: 2005Q2

REPORT INFORMATION
  Report Type: 
  Country: None (occurrence: None)
  Receive Date: 20050504
  Receipt Date: 20050311
  Transmission Date: 20051028
  Serious: Yes (Hospitalization, Other)
  Sender: FDA-Public Use
  Company Number: 200510357BWH

PATIENT
  Age: 50 Year
  Sex: Male

DRUGS (1)
  1. CIPRO XR [Suspect]
     Indication: ASPIRATION BIOPSY
     Dosage: 1000 MG, ONCE, ORAL
     Route: 048
     Dates: start: 20041202

REACTIONS (2)
  - CHOLELITHIASIS [None]
  - PYREXIA [None]
